FAERS Safety Report 4939008-6 (Version None)
Quarter: 2006Q1

REPORT INFORMATION
  Report Type: 
  Country: None (occurrence: None)
  Receive Date: 20060309
  Receipt Date: 20051018
  Transmission Date: 20060701
  Serious: Yes (Hospitalization)
  Sender: FDA-Public Use
  Company Number: US-MERCK-0510USA07629

PATIENT
  Age: 55 Year
  Sex: Male
  Weight: 104 kg

DRUGS (10)
  1. VIOXX [Suspect]
     Indication: OSTEOARTHRITIS
     Route: 048
     Dates: start: 20031126, end: 20040903
  2. VIOXX [Suspect]
     Indication: KNEE ARTHROPLASTY
     Route: 048
     Dates: start: 20031126, end: 20040903
  3. LISINOPRIL-BC [Concomitant]
     Indication: HYPERTENSION
     Route: 065
     Dates: start: 19900101, end: 20050521
  4. HYDROCHLOROTHIAZIDE [Concomitant]
     Indication: HYPERTENSION
     Route: 065
     Dates: start: 19990101
  5. LIPITOR [Concomitant]
     Indication: BLOOD CHOLESTEROL
     Route: 065
     Dates: start: 20020101
  6. DARVOCET [Concomitant]
     Indication: ARTHRALGIA
     Route: 065
     Dates: start: 20031101, end: 20040101
  7. IBUPROFEN [Concomitant]
     Indication: HEADACHE
     Route: 065
     Dates: start: 20000101
  8. FOLIC ACID [Concomitant]
     Route: 065
  9. CLINDAMYCIN [Concomitant]
     Route: 065
  10. RANITIDINE [Concomitant]
     Route: 065

REACTIONS (6)
  - ARTERIOSCLEROSIS [None]
  - CORONARY ARTERY DISEASE [None]
  - CORONARY ARTERY OCCLUSION [None]
  - DYSPEPSIA [None]
  - MYOCARDIAL INFARCTION [None]
  - VENTRICULAR HYPERTROPHY [None]
